FAERS Safety Report 22364574 (Version 1)
Quarter: 2023Q2

REPORT INFORMATION
  Report Type: Spontaneous
  Country: US (occurrence: US)
  Receive Date: 20230525
  Receipt Date: 20230525
  Transmission Date: 20230722
  Serious: No
  Sender: FDA-Public Use
  Company Number: US-drreddys-SPO/USA/23/0164480

PATIENT
  Age: 16 Year

DRUGS (2)
  1. ACCUTANE [Suspect]
     Active Substance: ISOTRETINOIN
     Indication: Acne
     Dosage: RMA ISSUE DATE 04 JANUARY 2023 09:27:31 AM
  2. ACCUTANE [Suspect]
     Active Substance: ISOTRETINOIN
     Dosage: RMA ISSUE DATE: 14 FEBRUARY 2023 04:36:23 PM, 23 MARCH 2023 10:23:23 AM

REACTIONS (2)
  - Epistaxis [Unknown]
  - Sunburn [Unknown]
